FAERS Safety Report 5853187-8 (Version None)
Quarter: 2008Q3

REPORT INFORMATION
  Report Type: 
  Country: None (occurrence: None)
  Receive Date: 20080821
  Receipt Date: 20080806
  Transmission Date: 20090109
  Serious: No
  Sender: FDA-Public Use
  Company Number: US-BOEHRINGER INGELHEIM GMBH, GERMANY-2008-BP-11130BP

PATIENT
  Sex: Female

DRUGS (6)
  1. SPIRIVA [Suspect]
     Indication: DYSPNOEA
     Route: 055
     Dates: start: 20080101
  2. MORPHINE [Concomitant]
     Indication: HEADACHE
     Route: 048
     Dates: start: 19930101
  3. DIAZEPAM [Concomitant]
     Indication: CHRONIC FATIGUE SYNDROME
     Route: 048
     Dates: start: 20000101
  4. CHLORAZEPAM [Concomitant]
     Indication: FIBROMYALGIA
     Route: 048
     Dates: start: 20040101
  5. OXYGEN [Concomitant]
     Indication: CHRONIC OBSTRUCTIVE PULMONARY DISEASE
     Dates: start: 19930101
  6. PAIN PRESCRIPTION [Concomitant]

REACTIONS (4)
  - CHEST DISCOMFORT [None]
  - DRUG INEFFECTIVE [None]
  - DYSPNOEA [None]
  - WRONG TECHNIQUE IN DRUG USAGE PROCESS [None]
